FAERS Safety Report 4311245-3 (Version None)
Quarter: 2004Q1

REPORT INFORMATION
  Report Type: 
  Country: None (occurrence: None)
  Receive Date: 20040304
  Receipt Date: 20040226
  Transmission Date: 20041129
  Serious: Yes (Death, Hospitalization)
  Sender: FDA-Public Use
  Company Number: WAES 0402USA02030

PATIENT
  Age: 28 Year
  Sex: Male

DRUGS (1)
  1. STROMECTOL [Suspect]
     Route: 048
     Dates: start: 20031130, end: 20031130

REACTIONS (2)
  - COMA [None]
  - DEATH [None]
